FAERS Safety Report 11794821 (Version 1)
Quarter: 2015Q4

REPORT INFORMATION
  Report Type: Spontaneous
  Country: DE (occurrence: DE)
  Receive Date: 20151202
  Receipt Date: 20151202
  Transmission Date: 20160305
  Serious: Yes (Hospitalization)
  Sender: FDA-Public Use
  Company Number: DE-TEVA-613170GER

PATIENT
  Age: 26 Year
  Sex: Female

DRUGS (8)
  1. SEROQUEL [Suspect]
     Active Substance: QUETIAPINE FUMARATE
     Dosage: 300 MILLIGRAM DAILY;
     Route: 048
     Dates: start: 20141209
  2. TAVOR [Suspect]
     Active Substance: LORAZEPAM
     Dosage: 4 MILLIGRAM DAILY;
     Route: 048
     Dates: start: 20141214, end: 20141215
  3. HALDOL [Concomitant]
     Active Substance: HALOPERIDOL
     Dosage: 10 MILLIGRAM DAILY;
     Route: 048
     Dates: start: 20141208
  4. DIAZEPAM. [Suspect]
     Active Substance: DIAZEPAM
     Dosage: 10 MILLIGRAM DAILY;
     Route: 048
     Dates: start: 20141208
  5. DIAZEPAM. [Suspect]
     Active Substance: DIAZEPAM
     Dosage: 15 TO 20 MG
     Route: 048
     Dates: start: 20141210, end: 20141213
  6. HALDOL [Concomitant]
     Active Substance: HALOPERIDOL
     Dosage: 15 MILLIGRAM DAILY;
     Route: 048
     Dates: start: 20141209
  7. SEROQUEL [Suspect]
     Active Substance: QUETIAPINE FUMARATE
     Dosage: 200 MILLIGRAM DAILY;
     Route: 048
     Dates: start: 20141210, end: 20141213
  8. DIAZEPAM. [Suspect]
     Active Substance: DIAZEPAM
     Dosage: 35 MILLIGRAM DAILY;
     Route: 048
     Dates: start: 20141209

REACTIONS (1)
  - Altered state of consciousness [Recovered/Resolved]

NARRATIVE: CASE EVENT DATE: 20141215
